FAERS Safety Report 8240270-5 (Version None)
Quarter: 2012Q1

REPORT INFORMATION
  Report Type: 
  Country: None (occurrence: None)
  Receive Date: 20120328
  Receipt Date: 20120328
  Transmission Date: 20120608
  Serious: Yes (Hospitalization)
  Sender: FDA-Public Use
  Company Number: None

PATIENT
  Sex: Female
  Weight: 64.7 kg

DRUGS (1)
  1. SPRINTEC [Suspect]
     Indication: CONTRACEPTION
     Dosage: 2 TABLET
     Route: 048
     Dates: start: 20120101, end: 20120327

REACTIONS (1)
  - PULMONARY EMBOLISM [None]
